FAERS Safety Report 13789207 (Version 1)
Quarter: 2017Q3

REPORT INFORMATION
  Report Type: Spontaneous
  Country: FI (occurrence: FI)
  Receive Date: 20170725
  Receipt Date: 20170725
  Transmission Date: 20171127
  Serious: Yes (Hospitalization, Disabling, Other)
  Sender: FDA-Public Use
  Company Number: FI-PFIZER INC-2016064716

PATIENT
  Age: 48 Year
  Sex: Female

DRUGS (4)
  1. TREXAN [Suspect]
     Active Substance: METHOTREXATE SODIUM
     Dosage: UNK
     Route: 058
     Dates: start: 20150422
  2. TREXAN [Suspect]
     Active Substance: METHOTREXATE SODIUM
     Dosage: 2.8571 MG
     Route: 048
  3. TREXAN [Suspect]
     Active Substance: METHOTREXATE SODIUM
     Dosage: 20 MG, WEEKLY
     Route: 048
     Dates: end: 20150522
  4. FOLIC ACID. [Suspect]
     Active Substance: FOLIC ACID
     Indication: SUPPORTIVE CARE
     Dosage: UNK
     Route: 065
     Dates: start: 20150422

REACTIONS (16)
  - Product storage error [Unknown]
  - Drug dispensing error [Unknown]
  - Underdose [Unknown]
  - Inadequate aseptic technique in use of product [Unknown]
  - General physical health deterioration [Not Recovered/Not Resolved]
  - Psoriatic arthropathy [Not Recovered/Not Resolved]
  - Fatigue [Not Recovered/Not Resolved]
  - Exposure to toxic agent [Recovered/Resolved]
  - Herpes zoster [Not Recovered/Not Resolved]
  - Inflammatory bowel disease [Not Recovered/Not Resolved]
  - Multiple use of single-use product [Unknown]
  - Urinary tract infection [Not Recovered/Not Resolved]
  - Product label issue [Unknown]
  - Product quality issue [Not Recovered/Not Resolved]
  - Psoriasis [Not Recovered/Not Resolved]
  - Drug prescribing error [Unknown]

NARRATIVE: CASE EVENT DATE: 201505
